FAERS Safety Report 9890427 (Version 1)
Quarter: 2014Q1

REPORT INFORMATION
  Report Type: Spontaneous
  Country: US (occurrence: None)
  Receive Date: 20140210
  Receipt Date: 20140210
  Transmission Date: 20141002
  Serious: No
  Sender: FDA-Public Use
  Company Number: None

PATIENT
  Age: 2 Year
  Sex: Male
  Weight: 13.2 kg

DRUGS (4)
  1. DAUNORUBICIN [Suspect]
  2. DEXAMETHASONE [Suspect]
  3. PEG-L-ASPARAGINASE (PEGASPARGASE, ONCOSPAR) [Suspect]
  4. VINCRISTINE SULFATE [Suspect]

REACTIONS (9)
  - Abdominal pain [None]
  - Faecaloma [None]
  - Pyrexia [None]
  - Ileus [None]
  - Colitis [None]
  - Inappropriate antidiuretic hormone secretion [None]
  - Blood culture positive [None]
  - Culture wound positive [None]
  - Escherichia infection [None]
